FAERS Safety Report 21265898 (Version 1)
Quarter: 2022Q3

REPORT INFORMATION
  Report Type: Spontaneous
  Country: ES (occurrence: ES)
  Receive Date: 20220829
  Receipt Date: 20220829
  Transmission Date: 20221026
  Serious: Yes (Other)
  Sender: FDA-Public Use
  Company Number: ES-GALDERMA-ES2022010863

PATIENT

DRUGS (1)
  1. MINOXIDIL [Suspect]
     Active Substance: MINOXIDIL
     Indication: Alopecia
     Dates: start: 2021

REACTIONS (4)
  - Blindness [Unknown]
  - Asthenopia [Unknown]
  - Drug ineffective for unapproved indication [Unknown]
  - Off label use [Unknown]
